FAERS Safety Report 9165293 (Version 1)
Quarter: 2013Q1

REPORT INFORMATION
  Report Type: Spontaneous
  Country: GB (occurrence: GB)
  Receive Date: 20130315
  Receipt Date: 20130315
  Transmission Date: 20140127
  Serious: Yes (Other)
  Sender: FDA-Public Use
  Company Number: GB-SANOFI-AVENTIS-2013SA022722

PATIENT
  Age: 82 Year
  Sex: Male

DRUGS (2)
  1. ALFUZOSIN HYDROCHLORIDE [Suspect]
     Indication: BENIGN PROSTATIC HYPERPLASIA
     Route: 048
     Dates: start: 20130218, end: 20130221
  2. CLOPIDOGREL [Concomitant]

REACTIONS (1)
  - Diplopia [Recovered/Resolved]
